FAERS Safety Report 10254520 (Version 2)
Quarter: 2014Q2

REPORT INFORMATION
  Report Type: Report from Study
  Country: DE (occurrence: DE)
  Receive Date: 20140624
  Receipt Date: 20140624
  Transmission Date: 20141212
  Serious: Yes (Hospitalization)
  Sender: FDA-Public Use
  Company Number: DE-ABBVIE-13P-062-1121297-00

PATIENT
  Age: 61 Year
  Sex: Male

DRUGS (10)
  1. TRENANTONE [Suspect]
     Indication: PROSTATE CANCER
     Route: 058
     Dates: start: 20130129
  2. ZOMETA [Concomitant]
     Indication: PRODUCT USED FOR UNKNOWN INDICATION
     Dates: start: 20130201
  3. PREDNISOLON [Concomitant]
     Indication: PRODUCT USED FOR UNKNOWN INDICATION
  4. NOVALGIN [Concomitant]
     Indication: PRODUCT USED FOR UNKNOWN INDICATION
  5. FOLSAN [Concomitant]
     Indication: PRODUCT USED FOR UNKNOWN INDICATION
  6. ETANERCEPT [Concomitant]
     Indication: PRODUCT USED FOR UNKNOWN INDICATION
  7. VIGANTOLETTEN [Concomitant]
     Indication: PRODUCT USED FOR UNKNOWN INDICATION
  8. FORMOTEROL [Concomitant]
     Indication: PRODUCT USED FOR UNKNOWN INDICATION
  9. SPIRIVA [Concomitant]
     Indication: PRODUCT USED FOR UNKNOWN INDICATION
  10. TAMSULOSIN [Concomitant]
     Indication: PRODUCT USED FOR UNKNOWN INDICATION

REACTIONS (2)
  - Micturition disorder [Unknown]
  - Aspartate aminotransferase decreased [Recovered/Resolved]
